FAERS Safety Report 7790732 (Version 3)
Quarter: 2013Q1

REPORT INFORMATION
  Report Type: Report from Study
  Country: US (occurrence: US)
  Receive Date: 20110130
  Receipt Date: 20130129
  Transmission Date: 20140127
  Serious: No
  Sender: FDA-Public Use
  Company Number: US-ABBOTT-10P-163-0673112-00

PATIENT
  Age: 21 Year
  Sex: Female

DRUGS (6)
  1. HUMIRA 40 MG/0.8 ML PEN [Suspect]
     Indication: ANKYLOSING SPONDYLITIS
     Dates: start: 201008, end: 201101
  2. HUMIRA 40 MG/0.8 ML PEN [Suspect]
  3. ORTHO TRI CYCLEN [Concomitant]
     Indication: CONTRACEPTION
     Dosage: PILL
  4. INDOMETHACIN [Concomitant]
     Indication: ANKYLOSING SPONDYLITIS
  5. SEASONIQUE [Concomitant]
     Indication: PRODUCT USED FOR UNKNOWN INDICATION
  6. ORTHONOVA [Concomitant]
     Indication: PRODUCT USED FOR UNKNOWN INDICATION
     Dates: start: 201101

REACTIONS (9)
  - Hot flush [Not Recovered/Not Resolved]
  - Hyperhidrosis [Not Recovered/Not Resolved]
  - Pruritus [Not Recovered/Not Resolved]
  - Erythema [Not Recovered/Not Resolved]
  - Pain [Recovered/Resolved]
  - Papule [Not Recovered/Not Resolved]
  - Urticaria [Not Recovered/Not Resolved]
  - Erythema [Not Recovered/Not Resolved]
  - Mechanical urticaria [Not Recovered/Not Resolved]
